FAERS Safety Report 13769982 (Version 1)
Quarter: 2017Q3

REPORT INFORMATION
  Report Type: Spontaneous
  Country: IT (occurrence: IT)
  Receive Date: 20170719
  Receipt Date: 20170719
  Transmission Date: 20171127
  Serious: Yes (Hospitalization)
  Sender: FDA-Public Use
  Company Number: IT-IMPAX LABORATORIES, INC-2017-IPXL-02085

PATIENT
  Age: 38 Year
  Sex: Female

DRUGS (3)
  1. DIGOXIN. [Suspect]
     Active Substance: DIGOXIN
     Indication: TACHYCARDIA FOETAL
     Dosage: UNK
     Route: 065
  2. DIGOXIN. [Suspect]
     Active Substance: DIGOXIN
     Indication: PRODUCT USE IN UNAPPROVED INDICATION
  3. FLECAINIDE /00627102/ [Suspect]
     Active Substance: FLECAINIDE ACETATE
     Indication: TACHYCARDIA FOETAL
     Dosage: UNK
     Route: 065

REACTIONS (4)
  - Exposure during pregnancy [Unknown]
  - Premature rupture of membranes [Unknown]
  - Caesarean section [None]
  - Product use in unapproved indication [Unknown]
